FAERS Safety Report 4726540-3 (Version None)
Quarter: 2005Q3

REPORT INFORMATION
  Report Type: 
  Country: None (occurrence: None)
  Receive Date: 20050727
  Receipt Date: 20050309
  Transmission Date: 20060218
  Serious: Yes (Hospitalization, Disabling)
  Sender: FDA-Public Use
  Company Number: US-MERCK-0503USA01977

PATIENT
  Age: 62 Year
  Sex: Male
  Weight: 95 kg

DRUGS (4)
  1. VIOXX [Suspect]
     Indication: ARTHRITIS
     Route: 048
     Dates: start: 20000401, end: 20020301
  2. ACTOS [Concomitant]
     Route: 065
  3. GLUCOPHAGE [Concomitant]
     Route: 065
  4. HYTRIN [Concomitant]
     Route: 065

REACTIONS (15)
  - ANGINA PECTORIS [None]
  - ANGINA UNSTABLE [None]
  - ARRHYTHMIA [None]
  - BENIGN PROSTATIC HYPERPLASIA [None]
  - CARDIAC DISORDER [None]
  - CHEST PAIN [None]
  - CORONARY ARTERY DISEASE [None]
  - DYSPEPSIA [None]
  - GALLBLADDER DISORDER [None]
  - GASTRITIS [None]
  - HELICOBACTER INFECTION [None]
  - HYPERLIPIDAEMIA [None]
  - JOINT INJURY [None]
  - MYOCARDIAL INFARCTION [None]
  - PULMONARY GRANULOMA [None]
